FAERS Safety Report 8425809 (Version 3)
Quarter: 2012Q4

REPORT INFORMATION
  Report Type: 
  Country: AU (occurrence: AU)
  Receive Date: 20120224
  Receipt Date: 20121112
  Transmission Date: 20130627
  Serious: Yes (Hospitalization, Disabling, Congenital Anomaly, Other)
  Sender: FDA-Public Use
  Company Number: PHHY2012AU012867

PATIENT
  Age: 0 Year
  Sex: Female
  Weight: 1.43 kg

DRUGS (1)
  1. CLOZARIL [Suspect]
     Dosage: 75 mg, UNK
     Route: 064

REACTIONS (8)
  - Female genital tract fistula [Unknown]
  - Cardiac disorder [Unknown]
  - VACTERL syndrome [Unknown]
  - Ventricular septal defect [Unknown]
  - Single functional kidney [Unknown]
  - Renal impairment [Unknown]
  - Premature baby [Unknown]
  - Foetal exposure during pregnancy [Unknown]
